FAERS Safety Report 21519538 (Version 1)
Quarter: 2022Q4

REPORT INFORMATION
  Report Type: Spontaneous
  Country: US (occurrence: US)
  Receive Date: 20221028
  Receipt Date: 20221028
  Transmission Date: 20230113
  Serious: Yes (Life-Threatening, Other)
  Sender: FDA-Public Use
  Company Number: US-PFIZER INC-PV202200083149

PATIENT
  Age: 29 Year
  Sex: Female

DRUGS (2)
  1. ETOMIDATE [Suspect]
     Active Substance: ETOMIDATE
     Dosage: 20 MG
  2. SUCCINYLCHOLINE CHLORIDE [Suspect]
     Active Substance: SUCCINYLCHOLINE CHLORIDE
     Dosage: 100 MG

REACTIONS (1)
  - Cardiac arrest [Unknown]
